FAERS Safety Report 5529030-3 (Version None)
Quarter: 2007Q4

REPORT INFORMATION
  Report Type: 
  Country: None (occurrence: None)
  Receive Date: 20071129
  Receipt Date: 20071121
  Transmission Date: 20080405
  Serious: Yes (Other)
  Sender: FDA-Public Use
  Company Number: JP-JNJFOC-20071109283

PATIENT
  Age: 85 Year
  Sex: Male

DRUGS (9)
  1. RISPERDAL [Suspect]
     Indication: DRUG USE FOR UNKNOWN INDICATION
     Route: 048
  2. SULPRIDE [Concomitant]
  3. AKINETON [Concomitant]
  4. HALCION [Concomitant]
  5. PAXIL [Concomitant]
  6. FUROSEMIDE [Concomitant]
  7. ALDACTONE [Concomitant]
  8. DIOVAN [Concomitant]
  9. PLETAL [Concomitant]

REACTIONS (1)
  - CARDIAC FAILURE [None]
